FAERS Safety Report 14575656 (Version 1)
Quarter: 2018Q1

REPORT INFORMATION
  Report Type: Spontaneous
  Country: US (occurrence: US)
  Receive Date: 20180227
  Receipt Date: 20180227
  Transmission Date: 20180509
  Serious: No
  Sender: FDA-Public Use
  Company Number: US-TORRENT-00005553

PATIENT
  Age: 92 Year
  Sex: Female
  Weight: 52 kg

DRUGS (1)
  1. TOLTERODINE TARTRATE EXTENDED-RELEASE CAPSULES [Suspect]
     Active Substance: TOLTERODINE TARTRATE
     Indication: PRODUCT USED FOR UNKNOWN INDICATION
     Dosage: EXTENDED-RELEASE

REACTIONS (3)
  - Irritability [Unknown]
  - Pollakiuria [Unknown]
  - Dry mouth [Unknown]
